FAERS Safety Report 8123040-8 (Version None)
Quarter: 2012Q1

REPORT INFORMATION
  Report Type: 
  Country: None (occurrence: None)
  Receive Date: 20120208
  Receipt Date: 20120127
  Transmission Date: 20120608
  Serious: Yes (Hospitalization)
  Sender: FDA-Public Use
  Company Number: CHPA2012US002317

PATIENT
  Age: 85 Year
  Sex: Female
  Weight: 58.957 kg

DRUGS (3)
  1. WARFARIN SODIUM [Suspect]
     Indication: ANTICOAGULANT THERAPY
     Dosage: UNK, UNK
     Route: 048
     Dates: end: 20111017
  2. WARFARIN SODIUM [Suspect]
     Dosage: UNK, UNK
     Route: 048
     Dates: start: 20111201
  3. GAS-X [Suspect]
     Indication: ABDOMINAL DISTENSION
     Dosage: UNK, UNK
     Route: 048
     Dates: end: 20111201

REACTIONS (6)
  - HAEMATOCHEZIA [None]
  - BLOOD URINE PRESENT [None]
  - ASTHENIA [None]
  - WEIGHT DECREASED [None]
  - CEREBROVASCULAR ACCIDENT [None]
  - DYSARTHRIA [None]
